FAERS Safety Report 25469474 (Version 1)
Quarter: 2025Q2

REPORT INFORMATION
  Report Type: Spontaneous
  Country: CZ (occurrence: CZ)
  Receive Date: 20250623
  Receipt Date: 20250623
  Transmission Date: 20250716
  Serious: Yes (Other)
  Sender: ABBVIE
  Company Number: CZ-CELLTRION HEALTHCARE HUNGARY KFT-2022CZ013446

PATIENT
  Age: 55 Year
  Sex: Male

DRUGS (5)
  1. VENETOCLAX [Suspect]
     Active Substance: VENETOCLAX
     Indication: Chronic lymphocytic leukaemia
     Route: 048
  2. FLUDARABINE [Suspect]
     Active Substance: FLUDARABINE PHOSPHATE
     Indication: Chronic lymphocytic leukaemia
     Route: 065
  3. ALLOPURINOL [Concomitant]
     Active Substance: ALLOPURINOL
     Indication: Product use in unapproved indication
     Route: 065
  4. COVID-19 vaccine [Concomitant]
     Indication: Product used for unknown indication
     Route: 065
  5. RITUXIMAB [Suspect]
     Active Substance: RITUXIMAB
     Indication: Chronic lymphocytic leukaemia
     Route: 065

REACTIONS (7)
  - Rotavirus test positive [Unknown]
  - Clostridium difficile infection [Unknown]
  - Clostridium test positive [Unknown]
  - Respiratory tract infection [Unknown]
  - Hyperuricaemia [Unknown]
  - Hyperphosphataemia [Unknown]
  - Hyperkalaemia [Unknown]
